FAERS Safety Report 6399588-3 (Version None)
Quarter: 2009Q4

REPORT INFORMATION
  Report Type: 
  Country: None (occurrence: None)
  Receive Date: 20091014
  Receipt Date: 20091005
  Transmission Date: 20100525
  Serious: Yes (Hospitalization)
  Sender: FDA-Public Use
  Company Number: JP-JNJFOC-20090908480

PATIENT
  Sex: Male
  Weight: 55 kg

DRUGS (5)
  1. MICONAZOLE [Suspect]
     Route: 048
     Dates: start: 20090826, end: 20090908
  2. MICONAZOLE [Suspect]
     Indication: ORAL CANDIDIASIS
     Route: 048
     Dates: start: 20090826, end: 20090908
  3. WARFARIN SODIUM [Interacting]
     Indication: ATRIAL FIBRILLATION
     Route: 048
  4. ROSUVASTATIN CALCIUM [Concomitant]
     Indication: DRUG USE FOR UNKNOWN INDICATION
  5. PILSICAINIDE HYDROCHLORIDE [Concomitant]
     Indication: DRUG USE FOR UNKNOWN INDICATION

REACTIONS (4)
  - DRUG INTERACTION [None]
  - HAEMATURIA [None]
  - HAEMORRHAGE SUBCUTANEOUS [None]
  - SWELLING [None]
